FAERS Safety Report 5608963-3 (Version None)
Quarter: 2008Q1

REPORT INFORMATION
  Report Type: 
  Country: None (occurrence: None)
  Receive Date: 20080129
  Receipt Date: 20080129
  Transmission Date: 20080703
  Serious: Yes (Life-Threatening, Hospitalization, Other)
  Sender: FDA-Public Use
  Company Number: None

PATIENT
  Age: 42 Year
  Sex: Female
  Weight: 56.6996 kg

DRUGS (3)
  1. VYTORIN [Suspect]
     Indication: BLOOD CHOLESTEROL INCREASED
     Dosage: ONE TABLET BEFORE BED TIME PO
     Route: 048
     Dates: start: 20020620, end: 20080127
  2. VYTORIN [Suspect]
     Indication: BLOOD TRIGLYCERIDES INCREASED
     Dosage: ONE TABLET BEFORE BED TIME PO
     Route: 048
     Dates: start: 20020620, end: 20080127
  3. VERAPAMIL [Suspect]
     Indication: HYPERTENSION
     Dosage: ONE TABLET DAILEY PO
     Route: 048
     Dates: start: 20020524, end: 20080127

REACTIONS (9)
  - ABDOMINAL PAIN UPPER [None]
  - BACK PAIN [None]
  - CHEST PAIN [None]
  - FATIGUE [None]
  - MYALGIA [None]
  - NECK PAIN [None]
  - NO THERAPEUTIC RESPONSE [None]
  - PAIN [None]
  - PAIN IN EXTREMITY [None]
